APPROVED DRUG PRODUCT: RISPERIDONE
Active Ingredient: RISPERIDONE
Strength: 0.25MG
Dosage Form/Route: TABLET, ORALLY DISINTEGRATING;ORAL
Application: A091537 | Product #006
Applicant: DASH PHARMACEUTICALS LLC
Approved: Feb 12, 2013 | RLD: No | RS: No | Type: DISCN